FAERS Safety Report 10348852 (Version 1)
Quarter: 2014Q3

REPORT INFORMATION
  Report Type: Spontaneous
  Country: GB (occurrence: None)
  Receive Date: 20140725
  Receipt Date: 20140725
  Transmission Date: 20150326
  Serious: Yes (Disabling, Other)
  Sender: FDA-Public Use
  Company Number: AUR-APL-2014-07869

PATIENT
  Age: 73 Year
  Sex: Male
  Weight: 86 kg

DRUGS (4)
  1. FLUDARABINE [Concomitant]
     Active Substance: FLUDARABINE PHOSPHATE
  2. ONDANSETRON 8MG (ONDANSETRON) 8MG [Suspect]
     Active Substance: ONDANSETRON
     Indication: NAUSEA
     Dosage: 8MG, TOTAL, ORAL
     Route: 048
     Dates: start: 20140303, end: 20140303
  3. RITUXIMAB (RITUXIMAB) [Concomitant]
     Active Substance: RITUXIMAB
  4. CYCLOPHOSPHAMIDE (CYCLOPHOSPHAMIDE) [Concomitant]
     Active Substance: CYCLOPHOSPHAMIDE

REACTIONS (6)
  - Emotional disorder [None]
  - Vertigo [None]
  - Dizziness [None]
  - Delirium [None]
  - Disorientation [None]
  - Bed rest [None]

NARRATIVE: CASE EVENT DATE: 20140303
